FAERS Safety Report 9624513 (Version 1)
Quarter: 2013Q4

REPORT INFORMATION
  Report Type: Spontaneous
  Country: FR (occurrence: FR)
  Receive Date: 20131015
  Receipt Date: 20131015
  Transmission Date: 20140711
  Serious: Yes (Death, Other)
  Sender: FDA-Public Use
  Company Number: FR-CELGENEUS-056-20785-13101912

PATIENT
  Age: 30 Year
  Sex: Male

DRUGS (2)
  1. THALIDOMIDE [Suspect]
     Indication: CHRONIC GRANULOMATOUS DISEASE
     Route: 048
  2. THALIDOMIDE [Suspect]
     Dosage: 100 MILLIGRAM
     Route: 048

REACTIONS (2)
  - Brain abscess [Fatal]
  - Deep vein thrombosis [Unknown]
